FAERS Safety Report 5518913-6 (Version None)
Quarter: 2007Q4

REPORT INFORMATION
  Report Type: 
  Country: None (occurrence: None)
  Receive Date: 20071114
  Receipt Date: 20071026
  Transmission Date: 20080405
  Serious: Yes (Hospitalization)
  Sender: FDA-Public Use
  Company Number: 11942

PATIENT
  Age: 67 Year
  Sex: Male

DRUGS (5)
  1. NITROGLYCERIN 0.4MG SUBLINGUAL TABLETS (ETHEX CORP.) [Suspect]
     Indication: ANGINA PECTORIS
     Dosage: 0.4MG PRN SUBLINGUAL
     Route: 060
     Dates: end: 20071018
  2. PLAVIX [Concomitant]
  3. LISINOPRIL [Concomitant]
  4. ZOCOR [Concomitant]
  5. COREG [Concomitant]

REACTIONS (3)
  - CORONARY ARTERY THROMBOSIS [None]
  - MYOCARDIAL INFARCTION [None]
  - PHARMACEUTICAL PRODUCT COMPLAINT [None]
